FAERS Safety Report 5766527-5 (Version None)
Quarter: 2008Q2

REPORT INFORMATION
  Report Type: 
  Country: None (occurrence: None)
  Receive Date: 20080612
  Receipt Date: 20080604
  Transmission Date: 20081010
  Serious: Yes (Hospitalization)
  Sender: FDA-Public Use
  Company Number: IT-ROCHE-540211

PATIENT
  Sex: Female

DRUGS (4)
  1. NAPROXEN SODIUM [Suspect]
     Indication: TOOTHACHE
     Route: 048
     Dates: start: 20071223, end: 20071227
  2. AMOXICILLIN TRIHYDRATE [Suspect]
     Indication: TOOTHACHE
     Route: 048
     Dates: start: 20071223, end: 20071227
  3. AMOXICILLIN TRIHYDRATE [Suspect]
     Route: 048
     Dates: start: 20071223, end: 20071227
  4. AMOXICILLIN TRIHYDRATE [Suspect]
     Route: 048
     Dates: start: 20071223, end: 20071227

REACTIONS (1)
  - LARYNGEAL OEDEMA [None]
